FAERS Safety Report 7979369-7 (Version None)
Quarter: 2011Q4

REPORT INFORMATION
  Report Type: 
  Country: None (occurrence: None)
  Receive Date: 20111214
  Receipt Date: 20110906
  Transmission Date: 20120403
  Serious: No
  Sender: FDA-Public Use
  Company Number: US-GLAXOSMITHKLINE-A0943543A

PATIENT
  Age: 69 Year
  Sex: Female

DRUGS (3)
  1. NICODERM CQ [Suspect]
     Indication: EX-TOBACCO USER
  2. NICORETTE [Suspect]
     Indication: EX-TOBACCO USER
  3. NICORETTE [Suspect]
     Indication: EX-TOBACCO USER
     Dates: start: 20110601

REACTIONS (6)
  - NICOTINE DEPENDENCE [None]
  - PRODUCT QUALITY ISSUE [None]
  - OROPHARYNGEAL PAIN [None]
  - OEDEMA PERIPHERAL [None]
  - DRUG ADMINISTRATION ERROR [None]
  - NAUSEA [None]
